FAERS Safety Report 8557675-5 (Version None)
Quarter: 2012Q3

REPORT INFORMATION
  Report Type: 
  Country: None (occurrence: None)
  Receive Date: 20120801
  Receipt Date: 20120724
  Transmission Date: 20120928
  Serious: Yes (Hospitalization, Other)
  Sender: FDA-Public Use
  Company Number: JP-VERTEX PHARMACEUTICALS INC.-AE-2012-010992

PATIENT
  Age: 62 Year
  Sex: Male

DRUGS (18)
  1. TRICHLORMETHIAZIDE [Concomitant]
     Route: 048
  2. ASPIRIN [Concomitant]
     Route: 048
  3. PERYCIT [Concomitant]
     Route: 048
  4. TELAVIC (TELAPREVIR) [Suspect]
     Indication: HEPATITIS C
     Route: 048
     Dates: start: 20120604, end: 20120615
  5. AMLODIPINE BESYLATE [Concomitant]
     Route: 048
  6. PEGINTERFERON ALFA-2B [Concomitant]
     Indication: HEPATITIS C
     Dates: start: 20120604, end: 20120624
  7. ENALAPRIL MALEATE [Concomitant]
     Route: 048
  8. CRESTOR [Concomitant]
     Route: 048
  9. TELAVIC (TELAPREVIR) [Suspect]
     Route: 048
     Dates: start: 20120616, end: 20120617
  10. TELAVIC (TELAPREVIR) [Suspect]
     Route: 048
     Dates: start: 20120618, end: 20120624
  11. PLAVIX [Concomitant]
     Route: 048
  12. RIBAVIRIN [Concomitant]
     Route: 048
     Dates: start: 20120605, end: 20120614
  13. BASEN OD [Concomitant]
     Route: 048
  14. RIBAVIRIN [Concomitant]
     Route: 048
     Dates: start: 20120615, end: 20120617
  15. BISOPROLOL FUMARATE [Concomitant]
     Route: 048
  16. RIBAVIRIN [Concomitant]
     Indication: HEPATITIS C
     Route: 048
     Dates: start: 20120604, end: 20120604
  17. RIBAVIRIN [Concomitant]
     Route: 048
     Dates: start: 20120618, end: 20120624
  18. IRON SUCROSE [Concomitant]
     Dates: start: 20120605, end: 20120608

REACTIONS (10)
  - HYPERURICAEMIA [None]
  - DIARRHOEA [None]
  - TOXIC SKIN ERUPTION [None]
  - HAEMOGLOBIN DECREASED [None]
  - DECREASED APPETITE [None]
  - ARTHRALGIA [None]
  - MALAISE [None]
  - PYREXIA [None]
  - LUMBAR SPINAL STENOSIS [None]
  - VOMITING [None]
